FAERS Safety Report 24551269 (Version 1)
Quarter: 2024Q4

REPORT INFORMATION
  Report Type: Report from Study
  Country: US (occurrence: US)
  Receive Date: 20241025
  Receipt Date: 20241025
  Transmission Date: 20250115
  Serious: Yes (Other)
  Sender: JAZZ
  Company Number: US-JAZZ PHARMACEUTICALS-2024-US-012473

PATIENT

DRUGS (1)
  1. XYREM [Suspect]
     Active Substance: SODIUM OXYBATE
     Indication: Insomnia
     Dosage: UNK UNK, BID
     Route: 048

REACTIONS (4)
  - Hallucination [Unknown]
  - Seizure [Unknown]
  - Therapeutic product effect decreased [Unknown]
  - Off label use [Unknown]
